FAERS Safety Report 14981324 (Version 1)
Quarter: 2018Q2

REPORT INFORMATION
  Report Type: Spontaneous
  Country: US (occurrence: US)
  Receive Date: 20180606
  Receipt Date: 20180606
  Transmission Date: 20180711
  Serious: Yes (Other)
  Sender: FDA-Public Use
  Company Number: US-009507513-1805USA015101

PATIENT
  Age: 17 Year
  Sex: Female
  Weight: 164.5 kg

DRUGS (1)
  1. HYDROCORTONE [Suspect]
     Active Substance: HYDROCORTISONE
     Dosage: 10 MG IN THE MORNING, 5 MG IN THE AFTERNOON AND 5 MG AT NIGHT TIME (12 MG/M2/DAY)
     Route: 048

REACTIONS (1)
  - Adrenal suppression [Unknown]
